FAERS Safety Report 9904700 (Version 3)
Quarter: 2014Q3

REPORT INFORMATION
  Report Type: Spontaneous
  Country: BR (occurrence: BR)
  Receive Date: 20140218
  Receipt Date: 20140703
  Transmission Date: 20150326
  Serious: Yes (Hospitalization, Other)
  Sender: FDA-Public Use
  Company Number: BR-ABBVIE-14P-020-1202987-00

PATIENT
  Age: 9 Year
  Sex: Female
  Weight: 25 kg

DRUGS (12)
  1. DEPAKOTE [Suspect]
     Active Substance: DIVALPROEX SODIUM
     Indication: EPILEPSY
     Route: 048
     Dates: start: 2013
  2. DEPAKENE [Suspect]
     Active Substance: VALPROIC ACID
     Dosage: 3.5 MILLILITER, IN THE AFTERNOON
     Route: 048
     Dates: end: 2013
  3. AMATO [Suspect]
     Active Substance: TOPIRAMATE
     Indication: PRODUCT USED FOR UNKNOWN INDICATION
     Route: 048
     Dates: start: 2013, end: 2014
  4. DAONIL [Concomitant]
     Active Substance: GLYBURIDE
     Indication: PRODUCT USED FOR UNKNOWN INDICATION
     Dosage: 1.5 TABLET, MORNING + AFTERNOON + NIGHT
     Route: 048
     Dates: start: 2013
  5. GARDENAL [Concomitant]
     Active Substance: PHENOBARBITAL
     Indication: PRODUCT USED FOR UNKNOWN INDICATION
  6. URBANIL [Concomitant]
     Active Substance: CLOBAZAM
     Indication: PRODUCT USED FOR UNKNOWN INDICATION
     Dosage: 1.5 MILLIGRAM, MORNING + AFTERNOON + NIGHT
     Route: 048
     Dates: start: 2013
  7. DEPAKENE [Suspect]
     Active Substance: VALPROIC ACID
     Indication: EPILEPSY
     Dosage: 10 MILLILITER, IN THE MORNING AND AT NIGHT
     Route: 048
     Dates: start: 2004
  8. HIXIZINE [Concomitant]
     Active Substance: HYDROXYZINE HYDROCHLORIDE
     Indication: PRURITUS
     Dosage: PROBABLY IN 8/8 OR 12/12 HOURS
     Dates: start: 20120712
  9. HIXIZINE [Concomitant]
     Active Substance: HYDROXYZINE HYDROCHLORIDE
     Indication: ANTIALLERGIC THERAPY
  10. RISPERIDONE. [Concomitant]
     Active Substance: RISPERIDONE
     Indication: ABNORMAL BEHAVIOUR
     Dosage: 0.5 MILLILITER, ONCE PER DAY: AT NIGHT
     Route: 048
     Dates: start: 20140110
  11. LAMOTRIGINE. [Suspect]
     Active Substance: LAMOTRIGINE
     Indication: CONVULSION PROPHYLAXIS
     Dosage: PROBABLY 100MG
     Route: 048
     Dates: start: 2012
  12. HYDROCORTISONE ACETATE. [Concomitant]
     Active Substance: HYDROCORTISONE ACETATE
     Indication: SKIN EXFOLIATION

REACTIONS (15)
  - Convulsion [Recovering/Resolving]
  - Erythema infectiosum [Recovered/Resolved]
  - Skin exfoliation [Unknown]
  - Skin discolouration [Recovered/Resolved]
  - Pruritus [Recovered/Resolved]
  - Weight increased [Unknown]
  - Nausea [Unknown]
  - Skin discolouration [Recovered/Resolved]
  - Blister [Unknown]
  - Decreased appetite [Recovered/Resolved]
  - Anaemia [Recovered/Resolved]
  - Nervousness [Unknown]
  - Petit mal epilepsy [Recovering/Resolving]
  - Product taste abnormal [Unknown]
  - Vomiting [Recovered/Resolved]

NARRATIVE: CASE EVENT DATE: 20120708
